FAERS Safety Report 6611644-0 (Version None)
Quarter: 2010Q1

REPORT INFORMATION
  Report Type: 
  Country: None (occurrence: None)
  Receive Date: 20100219
  Receipt Date: 20100203
  Transmission Date: 20100710
  Serious: Yes (Other)
  Sender: FDA-Public Use
  Company Number: AUR-APL-2010-00361

PATIENT
  Age: 63 Year
  Sex: Male
  Weight: 68.7 kg

DRUGS (10)
  1. TERBINAFINE HCL [Suspect]
     Indication: ONYCHOMYCOSIS
     Dosage: 250MG, ORAL
     Route: 048
     Dates: start: 20090624, end: 20091125
  2. AMLODIPINE [Concomitant]
  3. ATORVASTATIN [Concomitant]
  4. BECLOMETHASONE DIPROPIONATE [Concomitant]
     Route: 045
  5. BENDROFLUMETHIAZIDE [Suspect]
     Dosage: QD
  6. DOXAZOSIN MESYLATE [Concomitant]
     Dosage: QD
  7. EXENATIDE [Suspect]
     Dosage: 60UG BID
  8. METFORMIN HCL [Concomitant]
     Dosage: 500MG BID
  9. RAMIPRIL [Concomitant]
     Dosage: 5MG  BID
  10. SODIUM CROMOGLICATE [Concomitant]
     Dosage: PRN

REACTIONS (2)
  - GLOMERULAR FILTRATION RATE DECREASED [None]
  - RENAL IMPAIRMENT [None]
